FAERS Safety Report 12168980 (Version 2)
Quarter: 2016Q2

REPORT INFORMATION
  Report Type: Spontaneous
  Country: SE (occurrence: SE)
  Receive Date: 20160310
  Receipt Date: 20160407
  Transmission Date: 20160815
  Serious: Yes (Hospitalization, Other)
  Sender: FDA-Public Use
  Company Number: SE-PFIZER INC-2016140905

PATIENT
  Sex: Male

DRUGS (1)
  1. LYRICA [Suspect]
     Active Substance: PREGABALIN
     Route: 048

REACTIONS (10)
  - Overdose [Unknown]
  - Aggression [Unknown]
  - Screaming [Unknown]
  - Impulsive behaviour [Unknown]
  - Wheelchair user [Recovered/Resolved]
  - Amnesia [Unknown]
  - Loss of consciousness [Unknown]
  - Psychotic disorder [Unknown]
  - Aphasia [Unknown]
  - Dysphagia [Unknown]

NARRATIVE: CASE EVENT DATE: 201512
